FAERS Safety Report 8913769 (Version 3)
Quarter: 2012Q4

REPORT INFORMATION
  Report Type: 
  Country: US (occurrence: US)
  Receive Date: 20121116
  Receipt Date: 20121221
  Transmission Date: 20130627
  Serious: Yes (Hospitalization)
  Sender: FDA-Public Use
  Company Number: US-BIOGENIDEC-2012BI053840

PATIENT
  Age: 59 Year
  Sex: Female

DRUGS (18)
  1. TYSABRI [Suspect]
     Indication: MULTIPLE SCLEROSIS
     Route: 042
     Dates: start: 20101102
  2. AMANTADINE [Concomitant]
  3. CALTRATE [Concomitant]
  4. CELEBREX [Concomitant]
  5. VITAMIN B12 [Concomitant]
  6. FLEXIRIL [Concomitant]
  7. LASIX [Concomitant]
  8. LORTAB [Concomitant]
  9. NEURONTIN [Concomitant]
  10. NEXIUM [Concomitant]
  11. NYSTATIN [Concomitant]
  12. POTASSIUM CHLORIDE [Concomitant]
  13. PREDNISONE [Concomitant]
  14. PROLIA [Concomitant]
  15. SINEMET-CR 25 [Concomitant]
  16. SPIRONOLACTONE [Concomitant]
  17. TRAMADOL [Concomitant]
  18. ZOCOR [Concomitant]

REACTIONS (7)
  - Rhabdomyolysis [Unknown]
  - Renal failure acute [Unknown]
  - Pain [Unknown]
  - Head injury [Recovered/Resolved]
  - Cellulitis [Unknown]
  - Wound [Unknown]
  - Pneumonia [Not Recovered/Not Resolved]
